FAERS Safety Report 8301829-X (Version None)
Quarter: 2012Q1

REPORT INFORMATION
  Report Type: 
  Country: None (occurrence: None)
  Receive Date: 20120326
  Receipt Date: 20110310
  Transmission Date: 20120608
  Serious: Yes (Hospitalization, Other)
  Sender: FDA-Public Use
  Company Number: PHHY2010US74833

PATIENT
  Age: 71 Year
  Sex: Male

DRUGS (10)
  1. FLOMAX [Concomitant]
  2. FLUOXETINE [Concomitant]
  3. CRESTOR [Concomitant]
  4. LISINOPRIL [Concomitant]
  5. HCT CT (HYDROCHLOROTHIAZIDE) [Concomitant]
  6. TASIGNA [Suspect]
     Indication: CHRONIC MYELOID LEUKAEMIA
     Dosage: 300 MG, BID, ORAL ; 150 MG, BID, ORAL ; 150 MG, BID, ORAL
     Route: 048
     Dates: start: 20101025
  7. TASIGNA [Suspect]
     Indication: CHRONIC MYELOID LEUKAEMIA
     Dosage: 300 MG, BID, ORAL ; 150 MG, BID, ORAL ; 150 MG, BID, ORAL
     Route: 048
     Dates: start: 20101006
  8. TASIGNA [Suspect]
     Indication: CHRONIC MYELOID LEUKAEMIA
     Dosage: 300 MG, BID, ORAL ; 150 MG, BID, ORAL ; 150 MG, BID, ORAL
     Route: 048
     Dates: start: 20101110
  9. BLOOD CELLS, PACKED HUMAN (BLOOD CELLS, PACKED HUMAN) [Concomitant]
  10. ALBUTEROL [Concomitant]

REACTIONS (10)
  - FATIGUE [None]
  - PANCYTOPENIA [None]
  - ANAEMIA [None]
  - DRUG INEFFECTIVE [None]
  - LEUKOCYTOSIS [None]
  - THROMBOCYTOPENIA [None]
  - BLOOD SODIUM DECREASED [None]
  - BLOOD GLUCOSE INCREASED [None]
  - PALLOR [None]
  - BLOOD ALBUMIN DECREASED [None]
